FAERS Safety Report 6664720-0 (Version None)
Quarter: 2010Q1

REPORT INFORMATION
  Report Type: 
  Country: None (occurrence: None)
  Receive Date: 20100330
  Receipt Date: 20091221
  Transmission Date: 20100710
  Serious: Yes (Hospitalization)
  Sender: FDA-Public Use
  Company Number: 6056856

PATIENT
  Age: 58 Year
  Sex: Male

DRUGS (8)
  1. LEVOTHYROXINE SODIUM [Suspect]
     Indication: DRUG USE FOR UNKNOWN INDICATION
  2. ENBREL [Suspect]
     Dosage: 7.1429 MG (50 MG, 1 IN 1 WK)
     Route: 058
     Dates: start: 20050331, end: 20090701
  3. TENORMIN [Suspect]
     Indication: DRUG USE FOR UNKNOWN INDICATION
     Route: 048
  4. NORSET (MIRTAZAPINE) [Suspect]
     Indication: DRUG USE FOR UNKNOWN INDICATION
     Route: 048
  5. NEXIUM [Suspect]
     Indication: DRUG USE FOR UNKNOWN INDICATION
     Route: 048
  6. ZOLPIDEM TARTRATE [Suspect]
     Indication: DRUG USE FOR UNKNOWN INDICATION
     Route: 048
  7. CALCIUM CARBONATE [Suspect]
     Indication: DRUG USE FOR UNKNOWN INDICATION
     Route: 048
     Dates: end: 20090924
  8. UN-ALFA (ALFACALCIDOL) [Suspect]
     Indication: DRUG USE FOR UNKNOWN INDICATION
     Dates: end: 20090924

REACTIONS (3)
  - DISEASE PROGRESSION [None]
  - NEPHROPATHY [None]
  - RENAL FAILURE [None]
